FAERS Safety Report 20091964 (Version 1)
Quarter: 2021Q4

REPORT INFORMATION
  Report Type: Spontaneous
  Country: US (occurrence: US)
  Receive Date: 20211119
  Receipt Date: 20211119
  Transmission Date: 20220303
  Serious: Yes (Hospitalization, Other)
  Sender: FDA-Public Use
  Company Number: US-009507513-2103USA008321

PATIENT
  Sex: Male
  Weight: 85.2 kg

DRUGS (8)
  1. ZOSTAVAX [Suspect]
     Active Substance: VARICELLA-ZOSTER VIRUS STRAIN OKA/MERCK LIVE ANTIGEN
     Indication: Routine health maintenance
     Route: 065
     Dates: start: 20170425
  2. ZOSTAVAX [Suspect]
     Active Substance: VARICELLA-ZOSTER VIRUS STRAIN OKA/MERCK LIVE ANTIGEN
     Indication: Prophylaxis
  3. PROVENTIL [Suspect]
     Active Substance: ALBUTEROL
     Dosage: 2.5 MILLIGRAM
     Dates: start: 201801
  4. SYMBICORT [Suspect]
     Active Substance: BUDESONIDE\FORMOTEROL FUMARATE DIHYDRATE
     Indication: Prophylaxis against bronchospasm
     Dosage: INHALE 2 PUFFS BY MOUTH 2 TIMES DAILY
     Route: 048
  5. DUONEB [Suspect]
     Active Substance: ALBUTEROL SULFATE\IPRATROPIUM BROMIDE
     Dosage: 2.5-0.5 MG IN 3 ML, INHALE 3 ML VIA A NEBULIZER EVERY 6 HOURS IF NEEDED
  6. ATORVASTATIN [Concomitant]
     Active Substance: ATORVASTATIN
     Indication: Hyperlipidaemia
     Dosage: 40 MILLIGRAM
     Dates: start: 2012
  7. METOPROLOL [Concomitant]
     Active Substance: METOPROLOL
     Indication: Essential hypertension
     Dosage: 50 MG 1XDAILY
     Route: 048
     Dates: start: 2015
  8. GLUCAGON [Concomitant]
     Active Substance: GLUCAGON
     Indication: Type 1 diabetes mellitus
     Dosage: INJECT 1 MG IF NEEDED
     Dates: start: 20140205

REACTIONS (18)
  - Chronic obstructive pulmonary disease [Recovering/Resolving]
  - Viral infection [Recovering/Resolving]
  - Pneumonia [Recovering/Resolving]
  - Hypoxia [Recovering/Resolving]
  - Renal failure [Unknown]
  - Bipolar I disorder [Unknown]
  - Inappropriate antidiuretic hormone secretion [Unknown]
  - Hyponatraemia [Recovering/Resolving]
  - Gastrointestinal tract mucosal pigmentation [Unknown]
  - Muscle relaxant therapy [Unknown]
  - Pain [Unknown]
  - Brain natriuretic peptide increased [Unknown]
  - Asthma [Unknown]
  - Constipation [Unknown]
  - Eye inflammation [Unknown]
  - Restless legs syndrome [Unknown]
  - Diabetic complication [Unknown]
  - Drug ineffective [Unknown]

NARRATIVE: CASE EVENT DATE: 20180101
